FAERS Safety Report 6278346-4 (Version None)
Quarter: 2009Q3

REPORT INFORMATION
  Report Type: 
  Country: None (occurrence: None)
  Receive Date: 20090722
  Receipt Date: 20090720
  Transmission Date: 20100115
  Serious: Yes (Hospitalization)
  Sender: FDA-Public Use
  Company Number: US-ASTRAZENECA-2007UW01699

PATIENT
  Age: 91 Year
  Sex: Female
  Weight: 70.3 kg

DRUGS (3)
  1. SEROQUEL [Suspect]
     Indication: SLEEP DISORDER
     Route: 048
     Dates: start: 20040101
  2. SEROQUEL [Suspect]
     Indication: MENTAL DISORDER
     Route: 048
     Dates: start: 20040101
  3. ATIVAN [Concomitant]
     Dates: start: 20060301, end: 20070801

REACTIONS (2)
  - HERPES ZOSTER [None]
  - TYPE 2 DIABETES MELLITUS [None]
